FAERS Safety Report 22294380 (Version 3)
Quarter: 2023Q2

REPORT INFORMATION
  Report Type: Spontaneous
  Country: US (occurrence: US)
  Receive Date: 20230508
  Receipt Date: 20230628
  Transmission Date: 20230722
  Serious: No
  Sender: FDA-Public Use
  Company Number: US-BIOGEN-2022BI01134669

PATIENT
  Sex: Female

DRUGS (30)
  1. AVONEX [Suspect]
     Active Substance: INTERFERON BETA-1A
     Indication: Multiple sclerosis
     Route: 050
  2. AVONEX [Suspect]
     Active Substance: INTERFERON BETA-1A
  3. AVONEX [Suspect]
     Active Substance: INTERFERON BETA-1A
  4. AVONEX [Suspect]
     Active Substance: INTERFERON BETA-1A
  5. AVONEX [Suspect]
     Active Substance: INTERFERON BETA-1A
     Indication: Multiple sclerosis
     Route: 050
     Dates: start: 19980101
  6. AVONEX [Suspect]
     Active Substance: INTERFERON BETA-1A
     Route: 050
     Dates: start: 20210205
  7. AVONEX [Suspect]
     Active Substance: INTERFERON BETA-1A
  8. AVONEX [Suspect]
     Active Substance: INTERFERON BETA-1A
  9. AVONEX [Suspect]
     Active Substance: INTERFERON BETA-1A
  10. AVONEX [Suspect]
     Active Substance: INTERFERON BETA-1A
  11. AVONEX [Suspect]
     Active Substance: INTERFERON BETA-1A
  12. AVONEX [Suspect]
     Active Substance: INTERFERON BETA-1A
  13. AVONEX [Suspect]
     Active Substance: INTERFERON BETA-1A
  14. AVONEX [Suspect]
     Active Substance: INTERFERON BETA-1A
  15. AVONEX [Suspect]
     Active Substance: INTERFERON BETA-1A
  16. AVONEX [Suspect]
     Active Substance: INTERFERON BETA-1A
  17. AVONEX [Suspect]
     Active Substance: INTERFERON BETA-1A
  18. LOSARTAN [Concomitant]
     Active Substance: LOSARTAN
     Route: 050
  19. SIMVASTATIN [Concomitant]
     Active Substance: SIMVASTATIN
     Route: 050
  20. AMLODIPINE BESYLATE [Concomitant]
     Active Substance: AMLODIPINE BESYLATE
     Route: 050
  21. GABAPENTIN [Concomitant]
     Active Substance: GABAPENTIN
     Route: 050
  22. BUPROPION HYDROCHLORIDE [Concomitant]
     Active Substance: BUPROPION HYDROCHLORIDE
     Route: 050
  23. OSPHENA [Concomitant]
     Active Substance: OSPEMIFENE
     Route: 050
  24. MODAFINIL [Concomitant]
     Active Substance: MODAFINIL
     Route: 050
  25. VITAMIN B12 [Concomitant]
     Active Substance: CYANOCOBALAMIN
     Route: 050
  26. CLONAZEPAM [Concomitant]
     Active Substance: CLONAZEPAM
     Route: 050
  27. LAMOTRIGINE [Concomitant]
     Active Substance: LAMOTRIGINE
     Route: 050
  28. TRAZODONE HYDROCHLORIDE [Concomitant]
     Active Substance: TRAZODONE HYDROCHLORIDE
     Route: 050
  29. MELOXICAM [Concomitant]
     Active Substance: MELOXICAM
     Route: 050
  30. TYLENOL [Concomitant]
     Active Substance: ACETAMINOPHEN
     Route: 050

REACTIONS (7)
  - Magnetic resonance imaging abnormal [Unknown]
  - Memory impairment [Unknown]
  - Multiple sclerosis [Unknown]
  - Eye pain [Unknown]
  - Asthenia [Unknown]
  - Migraine [Unknown]
  - Muscular weakness [Unknown]
